FAERS Safety Report 15584697 (Version 1)
Quarter: 2018Q4

REPORT INFORMATION
  Report Type: Spontaneous
  Country: HR (occurrence: HR)
  Receive Date: 20181102
  Receipt Date: 20181102
  Transmission Date: 20190205
  Serious: Yes (Other)
  Sender: FDA-Public Use
  Company Number: HR-TEVA-2018-HR-971457

PATIENT
  Sex: Male

DRUGS (2)
  1. BROMOKRIPTIN [Suspect]
     Active Substance: BROMOCRIPTINE MESYLATE
     Dosage: 25 MILLIGRAM DAILY;
     Route: 048
     Dates: start: 20180704, end: 20180704
  2. ARIPIPRAZOLE. [Suspect]
     Active Substance: ARIPIPRAZOLE
     Dosage: 200 MILLIGRAM DAILY;
     Route: 048
     Dates: start: 20180704, end: 20180704

REACTIONS (3)
  - Somnolence [Unknown]
  - Intentional overdose [Unknown]
  - Suicide attempt [Unknown]

NARRATIVE: CASE EVENT DATE: 20180704
